FAERS Safety Report 4371547-1 (Version None)
Quarter: 2004Q2

REPORT INFORMATION
  Report Type: 
  Country: None (occurrence: None)
  Receive Date: 20040607
  Receipt Date: 20040526
  Transmission Date: 20050107
  Serious: Yes (Other)
  Sender: FDA-Public Use
  Company Number: US-JNJFOC-20030800591

PATIENT
  Sex: Female
  Weight: 63.96 kg

DRUGS (6)
  1. REMICADE [Suspect]
     Route: 042
  2. REMICADE [Suspect]
     Indication: RHEUMATOID ARTHRITIS
     Route: 042
  3. LODINE [Concomitant]
     Indication: RHEUMATOID ARTHRITIS
     Dosage: TAKEN FOR YEARS
     Route: 065
  4. ASPIRIN [Concomitant]
     Route: 049
  5. FOLIC ACID [Concomitant]
     Route: 049
  6. CALCIUM [Concomitant]

REACTIONS (3)
  - AUTOIMMUNE HEPATITIS [None]
  - DRUG INEFFECTIVE [None]
  - HEPATIC FIBROSIS [None]
